FAERS Safety Report 12686545 (Version 1)
Quarter: 2016Q3

REPORT INFORMATION
  Report Type: Spontaneous
  Country: FR (occurrence: FR)
  Receive Date: 20160825
  Receipt Date: 20160825
  Transmission Date: 20161109
  Serious: Yes (Hospitalization)
  Sender: FDA-Public Use
  Company Number: FR-SA-2016SA152297

PATIENT
  Age: 77 Year
  Sex: Female

DRUGS (7)
  1. ACUPAN [Suspect]
     Active Substance: NEFOPAM HYDROCHLORIDE
     Route: 065
     Dates: start: 201607
  2. TRAMADOL BASE [Suspect]
     Active Substance: TRAMADOL
     Route: 065
     Dates: start: 201607
  3. SEVREDOL [Suspect]
     Active Substance: MORPHINE
     Route: 065
     Dates: start: 201607
  4. LAROXYL [Suspect]
     Active Substance: AMITRIPTYLINE
     Route: 065
     Dates: start: 201607
  5. LOXAPAC [Suspect]
     Active Substance: LOXAPINE SUCCINATE
     Route: 065
     Dates: start: 201607
  6. STILNOX [Suspect]
     Active Substance: ZOLPIDEM TARTRATE
     Route: 048
     Dates: start: 201607
  7. LAMALINE [Suspect]
     Active Substance: ACETAMINOPHEN\CAFFEINE\OPIUM
     Route: 065
     Dates: start: 201607

REACTIONS (5)
  - Rhabdomyolysis [Recovered/Resolved]
  - Somnolence [Recovered/Resolved]
  - Fall [Recovered/Resolved]
  - Pneumonia aspiration [Recovered/Resolved]
  - Toxicity to various agents [Recovered/Resolved]

NARRATIVE: CASE EVENT DATE: 20160727
